FAERS Safety Report 13370474 (Version 1)
Quarter: 2017Q1

REPORT INFORMATION
  Report Type: Spontaneous
  Country: CN (occurrence: CN)
  Receive Date: 20170324
  Receipt Date: 20170324
  Transmission Date: 20170429
  Serious: Yes (Disabling)
  Sender: FDA-Public Use
  Company Number: CN-JNJFOC-20170323395

PATIENT
  Age: 0 Year
  Sex: Male
  Weight: 68 kg

DRUGS (2)
  1. SPORANOX [Suspect]
     Active Substance: ITRACONAZOLE
     Indication: TINEA INFECTION
     Route: 048
     Dates: start: 20161019, end: 20161026
  2. SPORANOX [Suspect]
     Active Substance: ITRACONAZOLE
     Indication: DERMATOPHYTOSIS
     Route: 048
     Dates: start: 20161019, end: 20161026

REACTIONS (3)
  - Tachypnoea [Recovering/Resolving]
  - Blood pressure decreased [Recovering/Resolving]
  - Hepatic function abnormal [Recovering/Resolving]

NARRATIVE: CASE EVENT DATE: 20161026
